FAERS Safety Report 5768362-0 (Version None)
Quarter: 2008Q2

REPORT INFORMATION
  Report Type: 
  Country: None (occurrence: None)
  Receive Date: 20080612
  Receipt Date: 20080305
  Transmission Date: 20081010
  Serious: No
  Sender: FDA-Public Use
  Company Number: US-ABBOTT-08P-163-0440528-00

PATIENT
  Sex: Female

DRUGS (7)
  1. HUMIRA [Suspect]
     Indication: PSORIASIS
     Route: 058
     Dates: start: 20080101, end: 20080127
  2. HUMIRA [Suspect]
     Route: 058
     Dates: start: 20080224
  3. METOPROLOL SUCCINATE [Concomitant]
     Indication: HYPERTENSION
     Route: 048
  4. LEVOTHYROXINE SODIUM [Concomitant]
     Indication: HYPOTHYROIDISM
     Route: 048
  5. ESOMEPRAZOLE MAGNESIUM [Concomitant]
     Indication: OESOPHAGITIS
     Route: 048
  6. ESTRADIOL [Concomitant]
     Indication: HORMONE REPLACEMENT THERAPY
     Route: 048
  7. NARINE [Concomitant]
     Indication: HYPERSENSITIVITY
     Route: 048

REACTIONS (5)
  - BRONCHITIS [None]
  - FEELING HOT [None]
  - FLUSHING [None]
  - PRURITUS [None]
  - UPPER RESPIRATORY TRACT INFECTION [None]
